FAERS Safety Report 9106398 (Version 1)
Quarter: 2013Q1

REPORT INFORMATION
  Report Type: Spontaneous
  Country: US (occurrence: US)
  Receive Date: 20130221
  Receipt Date: 20130221
  Transmission Date: 20140127
  Serious: No
  Sender: FDA-Public Use
  Company Number: US-BAYER-2013-018652

PATIENT
  Age: 35 Year
  Sex: Female

DRUGS (3)
  1. ULTRAVIST [Suspect]
     Indication: COMPUTERISED TOMOGRAM ABDOMEN
     Dosage: 130 ML, ONCE
     Route: 042
     Dates: start: 20130207, end: 20130207
  2. BENADRYL [Concomitant]
     Indication: PREMEDICATION
     Dosage: UNK
     Dates: start: 20130207, end: 20130207
  3. CORTICOSTEROID NOS [Concomitant]
     Indication: PREMEDICATION
     Dosage: UNK
     Dates: start: 20130207, end: 20130207

REACTIONS (2)
  - Throat irritation [Recovered/Resolved]
  - Eye pruritus [Recovered/Resolved]
